FAERS Safety Report 9366458 (Version 1)
Quarter: 2013Q2

REPORT INFORMATION
  Report Type: Report from Study
  Country: CH (occurrence: CH)
  Receive Date: 20130625
  Receipt Date: 20130625
  Transmission Date: 20140414
  Serious: Yes (Hospitalization)
  Sender: FDA-Public Use
  Company Number: CH-PFIZER INC-2013187477

PATIENT
  Age: 80 Year
  Sex: Female

DRUGS (8)
  1. PANTOPRAZOLE [Suspect]
  2. MOTILIUM [Suspect]
  3. VEMURAFENIB [Suspect]
     Indication: METASTATIC MALIGNANT MELANOMA
     Dosage: 960 MG, 2X/DAY
     Route: 048
     Dates: start: 20111101, end: 20120404
  4. EUTHYROX [Suspect]
  5. ASPIRIN CARDIO [Suspect]
  6. LAXOBERON [Suspect]
  7. MOVICOL [Suspect]
  8. BENORILATE [Suspect]

REACTIONS (1)
  - Pancreatitis [Recovered/Resolved]
